FAERS Safety Report 11615816 (Version 4)
Quarter: 2015Q4

REPORT INFORMATION
  Report Type: Spontaneous
  Country: US (occurrence: US)
  Receive Date: 20151009
  Receipt Date: 20151215
  Transmission Date: 20160304
  Serious: Yes (Other)
  Sender: FDA-Public Use
  Company Number: US-ROCHE-1643971

PATIENT
  Age: 66 Year
  Sex: Male
  Weight: 111.23 kg

DRUGS (1)
  1. ESBRIET [Suspect]
     Active Substance: PIRFENIDONE
     Indication: IDIOPATHIC PULMONARY FIBROSIS
     Route: 048
     Dates: start: 20150313

REACTIONS (5)
  - Retinal haemorrhage [Recovered/Resolved]
  - Asthma [Unknown]
  - Myocardial infarction [Unknown]
  - Lung infection [Unknown]
  - Oxygen saturation decreased [Unknown]

NARRATIVE: CASE EVENT DATE: 20151001
